FAERS Safety Report 23020529 (Version 1)
Quarter: 2023Q4

REPORT INFORMATION
  Report Type: Spontaneous
  Country: US (occurrence: None)
  Receive Date: 20231002
  Receipt Date: 20231002
  Transmission Date: 20240109
  Serious: Yes (Other)
  Sender: FDA-Public Use
  Company Number: None

PATIENT
  Age: 87 Year
  Sex: Male
  Weight: 73.8 kg

DRUGS (1)
  1. VYVGART [Suspect]
     Active Substance: EFGARTIGIMOD ALFA-FCAB
     Dosage: 745 MG EVERY OTHER WEEK INTRVENOUS?
     Route: 042
     Dates: start: 20230929, end: 20230929

REACTIONS (3)
  - Fatigue [None]
  - Muscular weakness [None]
  - Infusion related reaction [None]

NARRATIVE: CASE EVENT DATE: 20231001
